FAERS Safety Report 10223017 (Version 1)
Quarter: 2014Q2

REPORT INFORMATION
  Report Type: Spontaneous
  Country: US (occurrence: US)
  Receive Date: 20140607
  Receipt Date: 20140607
  Transmission Date: 20141212
  Serious: Yes (Other)
  Sender: FDA-Public Use
  Company Number: PHHY2014US065032

PATIENT
  Age: 17 Year
  Sex: Male

DRUGS (8)
  1. CLOZAPINE [Suspect]
     Dosage: 50MG IN THE MORNING AND 100 MG AT NIGHT PER DAY
  2. VALPROIC ACID [Suspect]
  3. CLONAZEPAM [Suspect]
     Dosage: 2.25 MG, PER DAY
  4. RISPERIDONE [Suspect]
     Indication: PSYCHOTIC DISORDER
     Dosage: 0.5 MG, BID
  5. RISPERIDONE [Suspect]
     Dosage: 4 MG, PERDAY
  6. LORAZEPAM [Suspect]
     Dosage: 0.5 MG, QID
  7. CHLORPROMAZINE [Suspect]
     Dosage: 300 MG, PER DAY
  8. HALOPERIDOL [Suspect]
     Dosage: 2 MG, QID

REACTIONS (2)
  - Tachycardia [Unknown]
  - Drug ineffective [Unknown]
